FAERS Safety Report 9643615 (Version 2)
Quarter: 2013Q4

REPORT INFORMATION
  Report Type: Spontaneous
  Country: CA (occurrence: None)
  Receive Date: 20131022
  Receipt Date: 20131129
  Transmission Date: 20140711
  Serious: Yes (Hospitalization)
  Sender: FDA-Public Use
  Company Number: 1959198

PATIENT
  Age: 52 Year
  Sex: Female

DRUGS (10)
  1. VANCOMYCIN HYDROCHLORIDE) [Suspect]
     Indication: WOUND
     Dosage: NOT REPORTED, UNKNOWN, TOPICAL
     Route: 061
  2. RED BLOOD CELLS [Concomitant]
  3. (FRESH BLOOD PLASMA) [Concomitant]
  4. (FLUID) [Concomitant]
  5. FENTANYL CITRATE [Suspect]
     Indication: INDUCTION OF ANAESTHESIA
  6. MIDAZOLAM [Suspect]
     Indication: INDUCTION OF ANAESTHESIA
     Route: 042
  7. PROPOFOL [Suspect]
     Indication: INDUCTION OF ANAESTHESIA
  8. ROCURONIUM BROMIDE [Suspect]
     Indication: INDUCTION OF ANAESTHESIA
  9. REMIFENTANIL [Suspect]
     Indication: MAINTENANCE OF ANAESTHESIA
     Route: 042
  10. DESFLURANE [Suspect]
     Indication: MAINTENANCE OF ANAESTHESIA
     Dosage: 0.9-1 MINIMAL ALVEOLAR CONCENTRATION

REACTIONS (2)
  - Anaphylactoid reaction [None]
  - Circulatory collapse [None]
